FAERS Safety Report 16595695 (Version 9)
Quarter: 2021Q2

REPORT INFORMATION
  Report Type: Spontaneous
  Country: CA (occurrence: CA)
  Receive Date: 20190719
  Receipt Date: 20210602
  Transmission Date: 20210716
  Serious: Yes (Other)
  Sender: FDA-Public Use
  Company Number: CA-AUROBINDO-AUR-APL-2019-040311

PATIENT
  Sex: Female

DRUGS (37)
  1. OLANZAPINE. [Interacting]
     Active Substance: OLANZAPINE
     Dosage: UNK UNK, ONCE A DAY
     Route: 065
  2. ACETAMINOPHEN;CAFFEINE [Suspect]
     Active Substance: ACETAMINOPHEN\CAFFEINE
     Indication: PYREXIA
     Dosage: 2 DOSAGE FORM
     Route: 065
  3. BREXPIPRAZOLE [Suspect]
     Active Substance: BREXPIPRAZOLE
     Indication: PRODUCT USED FOR UNKNOWN INDICATION
     Dosage: UNK
     Route: 065
  4. MINT ZOPICLONE [Interacting]
     Active Substance: ZOPICLONE
     Indication: INSOMNIA
     Dosage: 1 DOSAGE FORM, ONCE A DAY
     Route: 065
  5. RANITIDINE. [Interacting]
     Active Substance: RANITIDINE
     Indication: PRODUCT USED FOR UNKNOWN INDICATION
     Dosage: UNK
     Route: 065
  6. DEPAKOTE [Interacting]
     Active Substance: DIVALPROEX SODIUM
     Indication: PRODUCT USED FOR UNKNOWN INDICATION
     Dosage: 1 DOSAGE FORM, TWO TIMES A DAY
     Route: 065
  7. ACETAMINOPHEN;CAFFEINE [Suspect]
     Active Substance: ACETAMINOPHEN\CAFFEINE
     Indication: PAIN
  8. FLUVIRAL [Interacting]
     Active Substance: INFLUENZA VIRUS VACCINE
     Indication: PROPHYLAXIS
     Dosage: UNK
     Route: 065
  9. LEVOTHYROXINE SODIUM. [Interacting]
     Active Substance: LEVOTHYROXINE SODIUM
     Indication: PRODUCT USED FOR UNKNOWN INDICATION
     Dosage: 1 DOSAGE FORM
     Route: 065
  10. REXULTI [Interacting]
     Active Substance: BREXPIPRAZOLE
     Indication: PRODUCT USED FOR UNKNOWN INDICATION
     Dosage: UNK
     Route: 065
  11. CLOTRIMAZOLE. [Interacting]
     Active Substance: CLOTRIMAZOLE
     Indication: RASH
     Dosage: 1 DOSAGE FORM, TWO TIMES A DAY
     Route: 065
  12. VITAMIN D3 [Interacting]
     Active Substance: CHOLECALCIFEROL
     Indication: PRODUCT USED FOR UNKNOWN INDICATION
     Dosage: 1 DOSAGE FORM
     Route: 065
  13. OLANZAPINE ORALDISPERSIBLE TABLET [Interacting]
     Active Substance: OLANZAPINE
     Indication: MOOD ALTERED
     Dosage: 1 DOSAGE FORM, TWO TIMES A DAY
     Route: 065
  14. AA CLOZAPINE [Interacting]
     Active Substance: CLOZAPINE
     Indication: PRODUCT USED FOR UNKNOWN INDICATION
     Dosage: 1 DOSAGE FORM, ONCE A DAY
     Route: 065
  15. APO RANITIDINE [Interacting]
     Active Substance: RANITIDINE
     Dosage: 1 DOSAGE FORM, TWO TIMES A DAY
     Route: 065
  16. CLOZAPINE. [Suspect]
     Active Substance: CLOZAPINE
     Indication: PRODUCT USED FOR UNKNOWN INDICATION
     Dosage: 1 DOSAGE FORM, ONCE A DAY
     Route: 065
  17. DIVALPROEX [Suspect]
     Active Substance: DIVALPROEX SODIUM
     Indication: PRODUCT USED FOR UNKNOWN INDICATION
     Dosage: 1 DOSAGE FORM, TWO TIMES A DAY
     Route: 065
  18. AMLODIPINE [Suspect]
     Active Substance: AMLODIPINE BESYLATE
     Indication: PRODUCT USED FOR UNKNOWN INDICATION
     Dosage: 1 DOSAGE FORM, ONCE A DAY
     Route: 065
  19. OLANZAPINE. [Interacting]
     Active Substance: OLANZAPINE
     Dosage: UNK
     Route: 065
  20. JAMP ACETAMINOPHEN [Interacting]
     Active Substance: ACETAMINOPHEN
     Indication: PYREXIA
     Dosage: 2 DOSAGE FORM
     Route: 065
  21. MAALOX ANTACID [Interacting]
     Active Substance: ALUMINUM HYDROXIDE\DIMETHICONE\MAGNESIUM HYDROXIDE
     Indication: ABDOMINAL DISCOMFORT
     Dosage: 30 MILLIGRAM/MILILITER
     Route: 065
  22. PREMARIN [Interacting]
     Active Substance: ESTROGENS, CONJUGATED
     Indication: PRODUCT USED FOR UNKNOWN INDICATION
     Dosage: 0.5 GRAM
     Route: 061
  23. PREMARIN [Interacting]
     Active Substance: ESTROGENS, CONJUGATED
     Dosage: 5 GRAM
     Route: 065
  24. ARIPIPRAZOLE. [Interacting]
     Active Substance: ARIPIPRAZOLE
     Indication: PRODUCT USED FOR UNKNOWN INDICATION
     Dosage: UNK
     Route: 065
  25. OLANZAPINE. [Interacting]
     Active Substance: OLANZAPINE
     Indication: MOOD ALTERED
     Dosage: 1 DOSAGE FORM, TWO TIMES A DAY
     Route: 065
  26. AA CLOZAPINE [Interacting]
     Active Substance: CLOZAPINE
     Dosage: 3 DOSAGE FORM, ONCE A DAY
     Route: 065
  27. ALUMINUM HYDROXIDE. [Interacting]
     Active Substance: ALUMINUM HYDROXIDE
     Indication: ABDOMINAL DISCOMFORT
     Dosage: 30 MILLILITER
     Route: 048
  28. ALMAGEL [ALUMINUM HYDROXIDE/MAGNESIUM HYDROXIDE] [Interacting]
     Active Substance: ALUMINUM HYDROXIDE\MAGNESIUM HYDROXIDE
     Indication: ABDOMINAL DISCOMFORT
     Dosage: 30 MILLILITER
     Route: 048
  29. CLOZAPINE. [Suspect]
     Active Substance: CLOZAPINE
     Dosage: 3 DOSAGE FORM, ONCE A DAY
     Route: 065
  30. RANITIDINE. [Interacting]
     Active Substance: RANITIDINE
     Dosage: 150 MILLIGRAM, TWO TIMES A DAY
     Route: 065
  31. CLOZAPINE. [Interacting]
     Active Substance: CLOZAPINE
     Indication: PRODUCT USED FOR UNKNOWN INDICATION
     Dosage: UNK
     Route: 065
  32. APO RANITIDINE [Interacting]
     Active Substance: RANITIDINE
     Indication: PRODUCT USED FOR UNKNOWN INDICATION
     Dosage: 150 MILLIGRAM, TWO TIMES A DAY
     Route: 065
  33. APO RANITIDINE [Interacting]
     Active Substance: RANITIDINE
     Dosage: 1 DOSAGE FORM
     Route: 065
  34. ESTRADIOL. [Interacting]
     Active Substance: ESTRADIOL
     Indication: PRODUCT USED FOR UNKNOWN INDICATION
     Dosage: 1 DOSAGE FORM,
     Route: 067
  35. INFLUENZA VACCINE [Interacting]
     Active Substance: INFLUENZA VIRUS VACCINE
     Indication: PROPHYLAXIS
     Dosage: UNK
     Route: 065
  36. JAMP ACETAMINOPHEN [Interacting]
     Active Substance: ACETAMINOPHEN
     Indication: PAIN
  37. ZOPICLONE [Interacting]
     Active Substance: ZOPICLONE
     Indication: INSOMNIA
     Dosage: UNK, ONCE A DAY
     Route: 065

REACTIONS (5)
  - Electrocardiogram QT prolonged [Unknown]
  - Schizoaffective disorder [Unknown]
  - Drug level increased [Unknown]
  - Drug interaction [Unknown]
  - Sinus rhythm [Unknown]
